FAERS Safety Report 13376019 (Version 3)
Quarter: 2017Q2

REPORT INFORMATION
  Report Type: Spontaneous
  Country: GB (occurrence: GB)
  Receive Date: 20170328
  Receipt Date: 20170510
  Transmission Date: 20170830
  Serious: Yes (Hospitalization)
  Sender: FDA-Public Use
  Company Number: GB-DRREDDYS-GER/UKI/17/0088149

PATIENT
  Age: 67 Year
  Sex: Female

DRUGS (6)
  1. PARACETAMOL [Concomitant]
     Active Substance: ACETAMINOPHEN
     Indication: PAIN
     Route: 048
  2. IBUPROFEN. [Concomitant]
     Active Substance: IBUPROFEN
     Indication: CHONDROCALCINOSIS PYROPHOSPHATE
     Dates: start: 20170313
  3. PREDNISOLONE. [Concomitant]
     Active Substance: PREDNISOLONE
     Indication: CHONDROCALCINOSIS PYROPHOSPHATE
  4. ZOLEDRONIC ACID [Suspect]
     Active Substance: ZOLEDRONIC ACID
     Indication: OSTEOPOROSIS
     Dates: start: 20170308
  5. PREDNISOLONE. [Concomitant]
     Active Substance: PREDNISOLONE
  6. CO-DYDRAMOL [Concomitant]
     Active Substance: ACETAMINOPHEN\DIHYDROCODEINE
     Indication: CHONDROCALCINOSIS PYROPHOSPHATE
     Dates: start: 20170313

REACTIONS (13)
  - Myalgia [Recovered/Resolved]
  - Arthralgia [Recovered/Resolved]
  - Chondrocalcinosis pyrophosphate [Recovered/Resolved]
  - Arthritis bacterial [Recovered/Resolved]
  - Gout [Recovered/Resolved]
  - Pain in extremity [Recovered/Resolved]
  - Abasia [Recovered/Resolved]
  - Peripheral swelling [Recovering/Resolving]
  - Toothache [Recovered/Resolved]
  - Pain [Recovered/Resolved]
  - Pyrexia [Recovered/Resolved]
  - Cellulitis [Recovered/Resolved]
  - Grip strength decreased [Recovered/Resolved]

NARRATIVE: CASE EVENT DATE: 20170313
